FAERS Safety Report 4681220-8 (Version None)
Quarter: 2005Q2

REPORT INFORMATION
  Report Type: 
  Country: None (occurrence: None)
  Receive Date: 20050601
  Receipt Date: 20050509
  Transmission Date: 20051028
  Serious: No
  Sender: FDA-Public Use
  Company Number: 200510494BCC

PATIENT
  Age: 58 Year
  Sex: Female
  Weight: 79.3795 kg

DRUGS (15)
  1. E.S. BAYER BACK + BODY PAIN [Suspect]
     Indication: ARTHRITIS
     Dosage: SEE IMAGE
     Route: 048
     Dates: end: 20050202
  2. E.S. BAYER BACK + BODY PAIN [Suspect]
     Indication: WEIGHT DECREASED
     Dosage: SEE IMAGE
     Route: 048
     Dates: end: 20050202
  3. E.S. BAYER BACK + BODY PAIN [Suspect]
     Indication: ARTHRITIS
     Dosage: SEE IMAGE
     Route: 048
     Dates: start: 20050202
  4. E.S. BAYER BACK + BODY PAIN [Suspect]
     Indication: WEIGHT DECREASED
     Dosage: SEE IMAGE
     Route: 048
     Dates: start: 20050202
  5. TOPAMAX [Concomitant]
  6. SEROQUEL [Concomitant]
  7. ROBAXIN [Concomitant]
  8. TEMAZEPAM [Concomitant]
  9. PROMETHAZINE [Concomitant]
  10. NORCO [Concomitant]
  11. KEFLEX [Concomitant]
  12. TRAZODONE [Concomitant]
  13. NEURONTIN [Concomitant]
  14. THORAZINE [Concomitant]
  15. ABILIFY [Concomitant]

REACTIONS (3)
  - CONTUSION [None]
  - DECREASED APPETITE [None]
  - WEIGHT DECREASED [None]
